FAERS Safety Report 22241042 (Version 8)
Quarter: 2023Q4

REPORT INFORMATION
  Report Type: Report from Study
  Country: US (occurrence: US)
  Receive Date: 20230421
  Receipt Date: 20231127
  Transmission Date: 20240110
  Serious: Yes (Hospitalization, Other)
  Sender: FDA-Public Use
  Company Number: US-ARGENX-2023-ARGX-US000732

PATIENT

DRUGS (3)
  1. VYVGART [Suspect]
     Active Substance: EFGARTIGIMOD ALFA-FCAB
     Indication: Product used for unknown indication
     Dosage: UNK
     Route: 042
     Dates: start: 20230302
  2. VYVGART [Suspect]
     Active Substance: EFGARTIGIMOD ALFA-FCAB
     Dosage: UNK
     Route: 065
     Dates: start: 20230328
  3. CELLCEPT [Concomitant]
     Active Substance: MYCOPHENOLATE MOFETIL
     Indication: Product used for unknown indication
     Dosage: UNK

REACTIONS (21)
  - Myasthenia gravis crisis [Recovering/Resolving]
  - Symptom recurrence [Unknown]
  - Condition aggravated [Unknown]
  - Anxiety [Unknown]
  - Pancreatitis [Unknown]
  - Cardiac device implantation [Unknown]
  - Gastrointestinal haemorrhage [Unknown]
  - Fatigue [Unknown]
  - Diarrhoea [Not Recovered/Not Resolved]
  - Haematochezia [Not Recovered/Not Resolved]
  - Vomiting [Unknown]
  - Pre-existing condition improved [Unknown]
  - Hypersomnia [Unknown]
  - Fall [Recovered/Resolved]
  - Myasthenia gravis [Unknown]
  - Ophthalmoplegia [Unknown]
  - Muscular weakness [Unknown]
  - Catheter site infection [Unknown]
  - Asthenia [Unknown]
  - Unevaluable event [Unknown]
  - Therapy cessation [Unknown]

NARRATIVE: CASE EVENT DATE: 20230415
